FAERS Safety Report 23056365 (Version 5)
Quarter: 2024Q2

REPORT INFORMATION
  Report Type: Spontaneous
  Country: US (occurrence: US)
  Receive Date: 20231011
  Receipt Date: 20240603
  Transmission Date: 20240716
  Serious: No
  Sender: FDA-Public Use
  Company Number: US-Calliditas-2023CAL01299

PATIENT
  Age: 50 Year
  Sex: Female
  Weight: 61.68 kg

DRUGS (3)
  1. TARPEYO [Suspect]
     Active Substance: BUDESONIDE
     Indication: IgA nephropathy
     Dosage: 16 MG (4 MG CAPSULES) ONCE DAILY
     Route: 048
     Dates: start: 20230408, end: 20240521
  2. NIFEDIPINE [Concomitant]
     Active Substance: NIFEDIPINE
     Dosage: INCREASED FROM 30 MG TO 60 MG
  3. PRAVASTATIN [Concomitant]
     Active Substance: PRAVASTATIN
     Dosage: INCREASED FROM 40 MG TO 60 MG

REACTIONS (11)
  - Protein urine present [Unknown]
  - Peripheral swelling [Recovering/Resolving]
  - Headache [Unknown]
  - Swelling face [Unknown]
  - Product dose omission issue [Unknown]
  - Memory impairment [Unknown]
  - COVID-19 [Unknown]
  - Rash pruritic [Not Recovered/Not Resolved]
  - Swelling face [Not Recovered/Not Resolved]
  - Blood pressure increased [Unknown]
  - Face oedema [Unknown]
